FAERS Safety Report 8286311-0 (Version None)
Quarter: 2012Q2

REPORT INFORMATION
  Report Type: 
  Country: None (occurrence: None)
  Receive Date: 20120411
  Receipt Date: 20120411
  Transmission Date: 20120825
  Serious: No
  Sender: FDA-Public Use
  Company Number: None

PATIENT
  Age: 50 Year
  Sex: Female
  Weight: 52.1637 kg

DRUGS (1)
  1. EXLAX CHOCOLATED STIMULANT LAXATIVE REGULAR STRENGTH [Suspect]

REACTIONS (1)
  - PRODUCT CONTAMINATION PHYSICAL [None]
